FAERS Safety Report 5921836-1 (Version None)
Quarter: 2008Q4

REPORT INFORMATION
  Report Type: 
  Country: None (occurrence: None)
  Receive Date: 20081016
  Receipt Date: 20081016
  Transmission Date: 20090506
  Serious: Yes (Other)
  Sender: FDA-Public Use
  Company Number: None

PATIENT
  Age: 51 Year
  Sex: Female
  Weight: 71.6683 kg

DRUGS (1)
  1. ENBREL [Suspect]
     Indication: RHEUMATOID ARTHRITIS
     Dosage: INJECTION WEEKLY
     Dates: start: 20031201, end: 20040501

REACTIONS (1)
  - RELAPSING-REMITTING MULTIPLE SCLEROSIS [None]
